FAERS Safety Report 11124081 (Version 1)
Quarter: 2015Q2

REPORT INFORMATION
  Report Type: Spontaneous
  Country: KR (occurrence: KR)
  Receive Date: 20150520
  Receipt Date: 20150520
  Transmission Date: 20150821
  Serious: Yes (Hospitalization)
  Sender: FDA-Public Use
  Company Number: KR-AMGEN-KORCT2015047638

PATIENT
  Age: 54 Year
  Sex: Male

DRUGS (29)
  1. G-LASTA [Suspect]
     Active Substance: PEGFILGRASTIM
     Indication: PROPHYLAXIS
     Dosage: 6 MG, Q3WK
     Route: 058
     Dates: start: 20150414
  2. UCERAX [Concomitant]
     Dosage: 20 MG, UNK
     Route: 048
     Dates: start: 20150419, end: 20150429
  3. PREDNISOLONE. [Concomitant]
     Active Substance: PREDNISOLONE
     Dosage: 10 UNK, UNK
     Route: 048
     Dates: start: 20150424, end: 20150426
  4. MACPERAN [Concomitant]
     Dosage: 30 MG, UNK
     Route: 042
     Dates: start: 20150414, end: 20150422
  5. DEXAMETHASONE. [Concomitant]
     Active Substance: DEXAMETHASONE
     Dosage: UNK
     Route: 042
     Dates: start: 20150411, end: 20150414
  6. ZYLORIC [Concomitant]
     Active Substance: ALLOPURINOL
     Dosage: 300 MG, UNK
     Route: 048
     Dates: start: 20150411, end: 20150419
  7. LANSTON [Concomitant]
     Active Substance: LANSOPRAZOLE
     Dosage: 15 MG, UNK
     Route: 048
     Dates: start: 20150414, end: 20150419
  8. PHAZYME                            /06269601/ [Concomitant]
     Dosage: 285 MG, UNK
     Route: 048
     Dates: start: 20150415
  9. TRIDOL [Concomitant]
     Dosage: 150 MG, UNK
     Route: 048
     Dates: start: 20150422
  10. PREDNISOLONE. [Concomitant]
     Active Substance: PREDNISOLONE
     Dosage: 5 UNK, UNK
     Route: 048
     Dates: start: 20150427, end: 20150429
  11. G-LASTA [Suspect]
     Active Substance: PEGFILGRASTIM
     Indication: PERIPHERAL T-CELL LYMPHOMA UNSPECIFIED
  12. GELMA [Concomitant]
     Dosage: 30 G, UNK
     Route: 048
     Dates: start: 20150416, end: 20150416
  13. DESOWEN [Concomitant]
     Active Substance: DESONIDE
     Dosage: 120 UNK, UNK
     Route: 061
     Dates: start: 20150416, end: 20150416
  14. AZEPTIN                            /00884001/ [Concomitant]
     Active Substance: AZELASTINE
     Dosage: 2 MG, UNK
     Route: 048
     Dates: start: 20150416, end: 20150429
  15. MULEX [Concomitant]
     Dosage: 150 MG, UNK
     Route: 048
     Dates: start: 20150422, end: 20150429
  16. CYTARABINE. [Concomitant]
     Active Substance: CYTARABINE
     Dosage: 3360 MG, UNK
     Route: 042
     Dates: start: 20150412, end: 20150413
  17. HEXAMEDINE [Concomitant]
     Dosage: 100 UNK, UNK
     Route: 065
     Dates: start: 20140420, end: 20140420
  18. CALCIUM CHLORIDE. [Concomitant]
     Active Substance: CALCIUM CHLORIDE
     Dosage: 40 UNK, UNK
     Route: 042
     Dates: start: 20150416, end: 20150416
  19. ULCERLMIN [Concomitant]
     Active Substance: SUCRALFATE
     Dosage: 3 G, UNK
     Route: 048
     Dates: start: 20150414
  20. K-CONTIN [Concomitant]
     Dosage: 3600 MG, UNK
     Route: 048
     Dates: start: 20150416, end: 20150416
  21. EBASTEL [Concomitant]
     Active Substance: EBASTINE
     Dosage: 10 MG, UNK
     Route: 048
     Dates: start: 20150419, end: 20150429
  22. PREDNISOLONE. [Concomitant]
     Active Substance: PREDNISOLONE
     Dosage: 20 MG, UNK
     Route: 048
     Dates: start: 20150420, end: 20150422
  23. TRIDOL [Concomitant]
     Dosage: 50 MG, UNK
     Route: 042
     Dates: start: 20150421, end: 20150422
  24. SODIUM BICARBONATE. [Concomitant]
     Active Substance: SODIUM BICARBONATE
     Dosage: 40 UNK, UNK
     Route: 042
     Dates: start: 20150415, end: 20150422
  25. PENIRAMIN [Concomitant]
     Dosage: 4 MG, UNK
     Route: 042
     Dates: start: 20150420, end: 20150420
  26. CISPLATIN. [Concomitant]
     Active Substance: CISPLATIN
     Dosage: 168 MG, UNK
     Route: 042
     Dates: start: 20150411, end: 20150412
  27. MEGACE [Concomitant]
     Active Substance: MEGESTROL ACETATE
     Dosage: 20 UNK, UNK
     Route: 048
     Dates: start: 20150420, end: 20150421
  28. OCUMETHOLONE [Concomitant]
     Dosage: 0.6 UNK, UNK
     Route: 047
     Dates: start: 20150416, end: 20150416
  29. HEXAMEDINE [Concomitant]
     Dosage: 100 UNK, UNK
     Route: 065
     Dates: start: 20150424, end: 20150424

REACTIONS (1)
  - Pyrexia [Recovered/Resolved]

NARRATIVE: CASE EVENT DATE: 20150429
